FAERS Safety Report 5254204-9 (Version None)
Quarter: 2007Q1

REPORT INFORMATION
  Report Type: 
  Country: None (occurrence: None)
  Receive Date: 20070302
  Receipt Date: 20070302
  Transmission Date: 20070707
  Serious: Yes (Other)
  Sender: FDA-Public Use
  Company Number: US-GLAXOSMITHKLINE-A0641440A

PATIENT
  Age: 54 Year
  Sex: Female
  Weight: 136.4 kg

DRUGS (9)
  1. NICORETTE [Suspect]
     Indication: SMOKING CESSATION THERAPY
     Dosage: 4MG SEE DOSAGE TEXT
     Route: 002
     Dates: start: 20061027
  2. ASPIRIN [Concomitant]
  3. ZETIA [Concomitant]
  4. METOPROLOL SUCCINATE [Concomitant]
     Dosage: 50MG TWICE PER DAY
  5. RANITIDINE [Concomitant]
     Dosage: 150MG TWICE PER DAY
  6. LISINOPRIL [Concomitant]
  7. GLYBURIDE [Concomitant]
     Dosage: 5MG TWICE PER DAY
  8. METFORMIN HCL [Concomitant]
     Dosage: 500MG TWICE PER DAY
  9. ACTOS [Concomitant]
     Dosage: 45MG PER DAY

REACTIONS (5)
  - BLOOD GLUCOSE INCREASED [None]
  - DEPRESSION [None]
  - INTENTIONAL DRUG MISUSE [None]
  - SUICIDAL IDEATION [None]
  - WEIGHT INCREASED [None]
